FAERS Safety Report 20539173 (Version 2)
Quarter: 2022Q1

REPORT INFORMATION
  Report Type: Report from Study
  Country: US (occurrence: US)
  Receive Date: 20220302
  Receipt Date: 20220331
  Transmission Date: 20220423
  Serious: Yes (Other)
  Sender: FDA-Public Use
  Company Number: US-JNJFOC-20210941184

PATIENT
  Age: 61 Year
  Sex: Female

DRUGS (1)
  1. ELMIRON [Suspect]
     Active Substance: PENTOSAN POLYSULFATE SODIUM
     Indication: Bladder pain
     Route: 048

REACTIONS (3)
  - Maculopathy [Unknown]
  - Off label use [Unknown]
  - Incorrect dose administered [Unknown]
